FAERS Safety Report 8791960 (Version 2)
Quarter: 2012Q4

REPORT INFORMATION
  Report Type: 
  Country: US (occurrence: US)
  Receive Date: 20120918
  Receipt Date: 20121015
  Transmission Date: 20130627
  Serious: Yes (Hospitalization)
  Sender: FDA-Public Use
  Company Number: US-SANOFI-AVENTIS-2012SA065042

PATIENT
  Age: 75 Year
  Sex: Female

DRUGS (14)
  1. PLAQUENIL [Suspect]
     Route: 065
     Dates: end: 20120728
  2. HUMIRA [Suspect]
     Dates: start: 20060304, end: 20100710
  3. HUMIRA [Suspect]
     Route: 065
     Dates: start: 20120729
  4. METHOTREXATE [Suspect]
  5. PREDNISONE [Concomitant]
     Dates: start: 201202
  6. SIMVASTATIN [Concomitant]
  7. FUROSEMIDE [Concomitant]
  8. POTASSIUM CHLORIDE [Concomitant]
  9. DILTIAZEM [Concomitant]
  10. PROTONIX [Concomitant]
     Indication: GASTRIC DISORDER
  11. ACETYLSALICYLIC ACID [Concomitant]
  12. MULTIVITAMINS [Concomitant]
  13. VITAMIN D [Concomitant]
     Dosage: Dose:2000 unit(s)
  14. PRO-AIR [Concomitant]

REACTIONS (14)
  - Pericardial effusion [Recovered/Resolved]
  - Chest pain [Recovered/Resolved]
  - Urosepsis [Recovered/Resolved]
  - Mental disorder [Recovered/Resolved]
  - Clostridium difficile colitis [Unknown]
  - Chest pain [Recovered/Resolved]
  - Painful respiration [Recovered/Resolved]
  - Rheumatoid arthritis [Unknown]
  - Type 2 diabetes mellitus [Unknown]
  - Disinhibition [Unknown]
  - Asthenia [Unknown]
  - Pruritus [Recovered/Resolved]
  - Therapeutic response decreased [Unknown]
  - Incorrect dose administered [Unknown]
